FAERS Safety Report 16722489 (Version 6)
Quarter: 2020Q2

REPORT INFORMATION
  Report Type: Report from Study
  Country: CA (occurrence: CA)
  Receive Date: 20190820
  Receipt Date: 20200512
  Transmission Date: 20200713
  Serious: Yes (Other)
  Sender: FDA-Public Use
  Company Number: PHHY2019CA193318

PATIENT
  Age: 82 Year
  Sex: Male

DRUGS (10)
  1. TYLENOL [Concomitant]
     Active Substance: ACETAMINOPHEN
     Indication: PRODUCT USED FOR UNKNOWN INDICATION
     Dosage: 1 OT, OTHER
     Route: 065
  2. METFORMIN [Suspect]
     Active Substance: METFORMIN HYDROCHLORIDE
     Indication: TYPE 2 DIABETES MELLITUS
     Dosage: 2 DF, BID
     Route: 048
  3. DAPSONE. [Concomitant]
     Active Substance: DAPSONE
     Indication: PRODUCT USED FOR UNKNOWN INDICATION
     Route: 065
  4. ILARIS [Suspect]
     Active Substance: CANAKINUMAB
     Indication: CRYOPYRIN ASSOCIATED PERIODIC SYNDROME
     Dosage: 150 MG,Q 8 WEEKS
     Route: 030
     Dates: start: 20200327
  5. DESLORATADINE. [Concomitant]
     Active Substance: DESLORATADINE
     Indication: PRODUCT USED FOR UNKNOWN INDICATION
     Dosage: 1 DF, QD
     Route: 065
  6. COLCHICINE. [Suspect]
     Active Substance: COLCHICINE
     Indication: PRODUCT USED FOR UNKNOWN INDICATION
     Dosage: UNK UNK, BID
     Route: 065
     Dates: start: 2014
  7. ILARIS [Suspect]
     Active Substance: CANAKINUMAB
     Dosage: UNK
     Route: 065
  8. ETANERCEPT [Suspect]
     Active Substance: ETANERCEPT
     Indication: PRODUCT USED FOR UNKNOWN INDICATION
     Dosage: UNK UNK, BIW
     Route: 065
     Dates: start: 201902
  9. PREDNISONE. [Suspect]
     Active Substance: PREDNISONE
     Indication: PRODUCT USED FOR UNKNOWN INDICATION
     Dosage: 50 MG, UNK
     Route: 065
     Dates: start: 2014
  10. MONTELUKAST [Concomitant]
     Active Substance: MONTELUKAST SODIUM
     Indication: PRODUCT USED FOR UNKNOWN INDICATION
     Dosage: 1 DF, QD
     Route: 065

REACTIONS (30)
  - Eye pain [Unknown]
  - Deafness neurosensory [Unknown]
  - Upper respiratory tract infection [Unknown]
  - Mood swings [Unknown]
  - Agitation [Unknown]
  - Glaucoma [Unknown]
  - Delirium [Unknown]
  - Eye inflammation [Unknown]
  - Serum amyloid A protein increased [Unknown]
  - Treatment failure [Unknown]
  - Vascular cognitive impairment [Unknown]
  - Amnesia [Unknown]
  - Asthenia [Unknown]
  - Lethargy [Unknown]
  - Arthralgia [Unknown]
  - Autoinflammatory disease [Not Recovered/Not Resolved]
  - Ill-defined disorder [Unknown]
  - Cryopyrin associated periodic syndrome [Not Recovered/Not Resolved]
  - Ocular hyperaemia [Recovering/Resolving]
  - Gene mutation [Unknown]
  - Hypertension [Unknown]
  - Joint swelling [Unknown]
  - Dementia [Unknown]
  - Drug intolerance [Unknown]
  - Drug ineffective [Unknown]
  - Pyrexia [Unknown]
  - Urticaria [Unknown]
  - Bronchitis [Unknown]
  - Blood pressure systolic increased [Unknown]
  - Paranoia [Unknown]

NARRATIVE: CASE EVENT DATE: 201903
